FAERS Safety Report 7257720-3 (Version None)
Quarter: 2011Q1

REPORT INFORMATION
  Report Type: 
  Country: None (occurrence: None)
  Receive Date: 20110129
  Receipt Date: 20100520
  Transmission Date: 20110831
  Serious: No
  Sender: FDA-Public Use
  Company Number: US-ABBOTT-10P-163-0642310-00

PATIENT
  Sex: Female
  Weight: 81.72 kg

DRUGS (9)
  1. LASIX [Concomitant]
     Route: 048
     Dates: end: 20100323
  2. HUMIRA [Suspect]
     Indication: RHEUMATOID ARTHRITIS
     Route: 058
     Dates: start: 20100201
  3. PLAQUENIL [Concomitant]
     Indication: RHEUMATOID ARTHRITIS
  4. POTASSIUM CHLORIDE ER [Concomitant]
     Indication: PRODUCT USED FOR UNKNOWN INDICATION
     Dosage: 2 OR 1 TABLETS PRN DEPENDING ON SWELLING
     Route: 048
     Dates: start: 20100323
  5. LYRICA [Suspect]
     Indication: FIBROMYALGIA
  6. LYRICA [Suspect]
     Indication: OSTEOARTHRITIS
  7. LASIX [Concomitant]
     Indication: PRODUCT USED FOR UNKNOWN INDICATION
     Route: 048
     Dates: start: 20100323
  8. CELEBREX [Concomitant]
     Indication: RHEUMATOID ARTHRITIS
  9. POTASSIUM CHLORIDE ER [Concomitant]
     Route: 048
     Dates: end: 20100323

REACTIONS (8)
  - WEIGHT INCREASED [None]
  - INCORRECT DOSE ADMINISTERED [None]
  - INJECTION SITE EXTRAVASATION [None]
  - NAUSEA [None]
  - DEVICE MALFUNCTION [None]
  - OEDEMA PERIPHERAL [None]
  - INJECTION SITE HAEMORRHAGE [None]
  - HEADACHE [None]
